FAERS Safety Report 25257059 (Version 3)
Quarter: 2025Q3

REPORT INFORMATION
  Report Type: Spontaneous
  Country: BR (occurrence: BR)
  Receive Date: 20250430
  Receipt Date: 20250731
  Transmission Date: 20251021
  Serious: Yes (Other)
  Sender: PFIZER
  Company Number: BR-PFIZER INC-202500090251

PATIENT
  Sex: Male

DRUGS (1)
  1. VYNDAQEL [Suspect]
     Active Substance: TAFAMIDIS MEGLUMINE
     Dosage: 4 CAPSULES A DAY TO TOTAL 80MG/DAY

REACTIONS (4)
  - Product size issue [Unknown]
  - Product use complaint [Unknown]
  - Choking [Unknown]
  - Dyspnoea [Unknown]
